FAERS Safety Report 11975939 (Version 1)
Quarter: 2016Q1

REPORT INFORMATION
  Report Type: Report from Study
  Country: US (occurrence: US)
  Receive Date: 20160129
  Receipt Date: 20160129
  Transmission Date: 20160526
  Serious: No
  Sender: FDA-Public Use
  Company Number: US-AMGEN-USASL2016008979

PATIENT
  Age: 63 Year
  Sex: Male

DRUGS (1)
  1. ENBREL [Suspect]
     Active Substance: ETANERCEPT
     Indication: RHEUMATOID ARTHRITIS
     Dosage: UNK UNK, QWK
     Route: 065
     Dates: start: 20160109, end: 201601

REACTIONS (4)
  - Impaired work ability [Unknown]
  - Lip swelling [Unknown]
  - Oral mucosal eruption [Unknown]
  - Injection site rash [Unknown]

NARRATIVE: CASE EVENT DATE: 201601
